FAERS Safety Report 6639602-0 (Version None)
Quarter: 2010Q1

REPORT INFORMATION
  Report Type: 
  Country: None (occurrence: None)
  Receive Date: 20100318
  Receipt Date: 20100308
  Transmission Date: 20100710
  Serious: Yes (Other)
  Sender: FDA-Public Use
  Company Number: US-JNJFOC-20100207635

PATIENT
  Sex: Female
  Weight: 98.88 kg

DRUGS (2)
  1. REMICADE [Suspect]
     Indication: PSORIASIS
     Route: 042
  2. REMICADE [Suspect]
     Dosage: 4 INFUSIONS
     Route: 042

REACTIONS (4)
  - BLOOD PRESSURE DECREASED [None]
  - CYANOSIS [None]
  - DIZZINESS [None]
  - INFUSION RELATED REACTION [None]
